FAERS Safety Report 10108988 (Version 1)
Quarter: 2014Q2

REPORT INFORMATION
  Report Type: Spontaneous
  Country: US (occurrence: None)
  Receive Date: 20140423
  Receipt Date: 20140423
  Transmission Date: 20141212
  Serious: Yes (Hospitalization)
  Sender: FDA-Public Use
  Company Number: UCM201404-000058

PATIENT
  Age: 57 Year
  Sex: Female

DRUGS (2)
  1. HYDROCHLOROTHIAZIDE [Suspect]
  2. LEVOTHYROXINE [Suspect]

REACTIONS (4)
  - Inappropriate antidiuretic hormone secretion [None]
  - Convulsion [None]
  - Ovarian cancer metastatic [None]
  - Metastases to peritoneum [None]
